FAERS Safety Report 11599547 (Version 1)
Quarter: 2015Q3

REPORT INFORMATION
  Report Type: Spontaneous
  Country: US (occurrence: US)
  Receive Date: 20150916
  Receipt Date: 20150916
  Transmission Date: 20151125
  Serious: No
  Sender: FDA-Public Use
  Company Number: US-ELI_LILLY_AND_COMPANY-US200711000576

PATIENT
  Sex: Female

DRUGS (5)
  1. FORTEO [Suspect]
     Active Substance: TERIPARATIDE
     Dates: end: 20070926
  2. FORTEO [Suspect]
     Active Substance: TERIPARATIDE
     Dosage: UNK, QOD
     Dates: start: 20071201, end: 20071227
  3. FORTEO [Suspect]
     Active Substance: TERIPARATIDE
     Dosage: UNK, DAILY (1/D)
     Dates: start: 20071228
  4. FORTEO [Suspect]
     Active Substance: TERIPARATIDE
     Dosage: UNK, UNK
     Dates: start: 2004
  5. FORTEO [Suspect]
     Active Substance: TERIPARATIDE
     Dosage: UNK, QOD
     Dates: start: 200711, end: 200711

REACTIONS (2)
  - Paraesthesia [Unknown]
  - Muscle spasms [Recovering/Resolving]
